FAERS Safety Report 7607414-7 (Version None)
Quarter: 2011Q3

REPORT INFORMATION
  Report Type: 
  Country: None (occurrence: None)
  Receive Date: 20110713
  Receipt Date: 20110630
  Transmission Date: 20111222
  Serious: Yes (Hospitalization)
  Sender: FDA-Public Use
  Company Number: US-MYLANLABS-2011S1013936

PATIENT
  Age: 50 Year
  Sex: Male

DRUGS (1)
  1. KETOCONAZOLE [Suspect]
     Indication: HYPERCORTICOIDISM
     Dosage: FOUR DOSES OF KETOCONAZOLE (200MG)
     Route: 048

REACTIONS (1)
  - ADRENOCORTICAL INSUFFICIENCY ACUTE [None]
